FAERS Safety Report 6196705-5 (Version None)
Quarter: 2009Q2

REPORT INFORMATION
  Report Type: 
  Country: None (occurrence: None)
  Receive Date: 20090520
  Receipt Date: 20090417
  Transmission Date: 20091009
  Serious: No
  Sender: FDA-Public Use
  Company Number: US-BAYER-200911241BCC

PATIENT
  Age: 52 Year
  Sex: Female
  Weight: 120 kg

DRUGS (6)
  1. ALEVE [Suspect]
     Indication: ARTHRALGIA
     Dosage: DAILY DOSE: 1 TO 2 CAPLETS
     Route: 048
     Dates: start: 20050101, end: 20090414
  2. ALEVE [Suspect]
     Dosage: DAILY DOSE: 1 TO 2 TABLETS
     Route: 048
     Dates: start: 20050101, end: 20090414
  3. LEVOTHYROXINE SODIUM [Concomitant]
     Indication: DRUG USE FOR UNKNOWN INDICATION
     Route: 065
  4. CYTOMEL [Concomitant]
     Indication: DRUG USE FOR UNKNOWN INDICATION
     Route: 065
  5. STATIN [Concomitant]
     Indication: DRUG USE FOR UNKNOWN INDICATION
     Route: 065
  6. ASPIRIN [Concomitant]
     Indication: DRUG USE FOR UNKNOWN INDICATION
     Route: 065

REACTIONS (1)
  - THROAT IRRITATION [None]
